APPROVED DRUG PRODUCT: DONEPEZIL HYDROCHLORIDE
Active Ingredient: DONEPEZIL HYDROCHLORIDE
Strength: 5MG
Dosage Form/Route: TABLET;ORAL
Application: A090493 | Product #001
Applicant: SUN PHARMACEUTICAL INDUSTRIES LTD
Approved: May 31, 2011 | RLD: No | RS: No | Type: DISCN